FAERS Safety Report 9931044 (Version 2)
Quarter: 2014Q1

REPORT INFORMATION
  Report Type: Spontaneous
  Country: DE (occurrence: DE)
  Receive Date: 20140227
  Receipt Date: 20140227
  Transmission Date: 20141002
  Serious: Yes (Life-Threatening, Hospitalization, Other)
  Sender: FDA-Public Use
  Company Number: PHHY2013DE146058

PATIENT
  Sex: Female
  Weight: 62 kg

DRUGS (10)
  1. AFINITOR [Suspect]
     Indication: BREAST CANCER METASTATIC
     Dosage: 5 MG, QD
     Route: 048
     Dates: start: 201306, end: 201310
  2. ZOMETA [Suspect]
     Indication: METASTASES TO BONE
     Dosage: 4 MG
     Route: 042
     Dates: start: 20131023, end: 20131023
  3. BISPHOSPHONATES [Concomitant]
  4. TARGIN [Concomitant]
  5. EXEMESTAN [Concomitant]
     Dosage: 25 MG, DAILY
  6. EXEMESTAN [Concomitant]
     Dosage: 25 MG, QD
     Route: 048
     Dates: start: 20131104
  7. BISOHEXAL [Concomitant]
     Dosage: 5 MG, QD
  8. PANTOZOL [Concomitant]
     Dosage: 40 MG, QD
  9. PANTOZOL [Concomitant]
     Dosage: 40 MG, BID
  10. TOREM [Concomitant]
     Dosage: 0.5 DF, BID

REACTIONS (12)
  - Upper gastrointestinal haemorrhage [Not Recovered/Not Resolved]
  - Telangiectasia [Not Recovered/Not Resolved]
  - Gastrointestinal ulcer [Not Recovered/Not Resolved]
  - Angiodysplasia [Not Recovered/Not Resolved]
  - Haemoglobin decreased [Recovering/Resolving]
  - Helicobacter gastritis [Not Recovered/Not Resolved]
  - Melaena [Recovering/Resolving]
  - Haematemesis [Not Recovered/Not Resolved]
  - Vascular anomaly [Not Recovered/Not Resolved]
  - Thrombosis [Not Recovered/Not Resolved]
  - Gastric mucosa erythema [Not Recovered/Not Resolved]
  - Local swelling [Unknown]
